FAERS Safety Report 8416185-6 (Version None)
Quarter: 2012Q2

REPORT INFORMATION
  Report Type: 
  Country: None (occurrence: None)
  Receive Date: 20120606
  Receipt Date: 20120601
  Transmission Date: 20120825
  Serious: Yes (Death, Hospitalization)
  Sender: FDA-Public Use
  Company Number: PHHY2012JP046230

PATIENT
  Age: 67 Year
  Sex: Female

DRUGS (6)
  1. ASPIRIN [Concomitant]
     Route: 048
  2. BOSENTAN MONOHYDRATE [Concomitant]
     Dosage: 250 MG
     Route: 048
  3. BERAPROST SODIUM [Concomitant]
     Dosage: 120 UG
  4. SARPOGRELATE HYDROCHLORIDE [Concomitant]
     Route: 048
  5. GLEEVEC [Suspect]
     Indication: PULMONARY ARTERIAL HYPERTENSION
     Route: 048
  6. SILDENAFIL CITRATE [Concomitant]
     Dosage: 60 MG
     Route: 048

REACTIONS (4)
  - DEATH [None]
  - FALL [None]
  - HEAD INJURY [None]
  - SUBDURAL HAEMATOMA [None]
